FAERS Safety Report 22539385 (Version 1)
Quarter: 2023Q2

REPORT INFORMATION
  Report Type: Spontaneous
  Country: US (occurrence: US)
  Receive Date: 20230609
  Receipt Date: 20230609
  Transmission Date: 20230722
  Serious: Yes (Death)
  Sender: FDA-Public Use
  Company Number: US-SAGENT PHARMACEUTICALS-2023SAG000099

PATIENT

DRUGS (32)
  1. METHOTREXATE [Suspect]
     Active Substance: METHOTREXATE
     Indication: Acute lymphocytic leukaemia
     Dosage: 250 MG/M?
     Route: 042
  2. METHOTREXATE [Suspect]
     Active Substance: METHOTREXATE
     Dosage: 250 MG/M?
     Route: 042
  3. METHOTREXATE [Suspect]
     Active Substance: METHOTREXATE
     Dosage: 250 MG/M?
     Route: 042
  4. METHOTREXATE [Suspect]
     Active Substance: METHOTREXATE
     Dosage: 250 MG/M?
     Route: 042
  5. INOTUZUMAB OZOGAMICIN [Suspect]
     Active Substance: INOTUZUMAB OZOGAMICIN
     Indication: Acute lymphocytic leukaemia
     Dosage: 1.3-1.8 MG/M?
     Route: 042
  6. INOTUZUMAB OZOGAMICIN [Suspect]
     Active Substance: INOTUZUMAB OZOGAMICIN
     Dosage: 1.0-1.3 MG/M?
     Route: 042
  7. INOTUZUMAB OZOGAMICIN [Suspect]
     Active Substance: INOTUZUMAB OZOGAMICIN
     Dosage: 1.0-1.3 MG/M?
     Route: 042
  8. INOTUZUMAB OZOGAMICIN [Suspect]
     Active Substance: INOTUZUMAB OZOGAMICIN
     Dosage: 0.9 MG/M? DURING CYCLE 1 FRACTIONATED INTO 0.6 MG/M? ON DAY 2 AND 0.3 MG/M? ON DAY 8 OF CYCLE 1, AND
  9. BLINATUMOMAB [Suspect]
     Active Substance: BLINATUMOMAB
     Indication: Acute lymphocytic leukaemia
     Dosage: 9 MICROGRAM, FIRST FOUR DAYS AND THEN INCREASED TO 28 MICROGRAM PER DAY FOR REST OF THE CYCLE
     Route: 042
  10. BLINATUMOMAB [Suspect]
     Active Substance: BLINATUMOMAB
     Dosage: 28 MICROGRAM FOR 4 WEEKS
     Route: 042
  11. CYCLOPHOSPHAMIDE [Suspect]
     Active Substance: CYCLOPHOSPHAMIDE
     Indication: Acute lymphocytic leukaemia
     Dosage: 150 MG/M?, Q12H ON DAYS 1 TO 3
     Route: 042
  12. CYCLOPHOSPHAMIDE [Suspect]
     Active Substance: CYCLOPHOSPHAMIDE
     Dosage: 150 MG/M?, Q12H ON DAYS 1 TO 3
     Route: 042
  13. CYCLOPHOSPHAMIDE [Suspect]
     Active Substance: CYCLOPHOSPHAMIDE
     Dosage: 150 MG/M?, Q12H ON DAYS 1 TO 3
     Route: 042
  14. CYCLOPHOSPHAMIDE [Suspect]
     Active Substance: CYCLOPHOSPHAMIDE
     Dosage: 150 MG/M?, Q12H ON DAYS 1 TO 3
     Route: 042
  15. DEXAMETHASONE [Suspect]
     Active Substance: DEXAMETHASONE
     Indication: Acute lymphocytic leukaemia
     Dosage: 20 MILLIGRAM, QD, INTRAVENOUSLY OR ORALLY ON DAYS 1?4 AND 11?14)
     Route: 042
  16. DEXAMETHASONE [Suspect]
     Active Substance: DEXAMETHASONE
     Dosage: 20 MILLIGRAM, QD, INTRAVENOUSLY OR ORALLY ON DAYS 1?4 AND 11?14)
     Route: 042
  17. DEXAMETHASONE [Suspect]
     Active Substance: DEXAMETHASONE
     Dosage: 20 MILLIGRAM, QD, INTRAVENOUSLY OR ORALLY ON DAYS 1?4 AND 11?14)
     Route: 042
  18. DEXAMETHASONE [Suspect]
     Active Substance: DEXAMETHASONE
     Dosage: 20 MILLIGRAM, QD, INTRAVENOUSLY OR ORALLY ON DAYS 1-4 AND 11-14)
     Route: 042
  19. VINCRISTINE [Suspect]
     Active Substance: VINCRISTINE
     Indication: Acute lymphocytic leukaemia
     Dosage: 2 MILLIGRAM, FLAT DOSE ON DAY 1 AND 8 (?2 DAYS)
     Route: 042
  20. VINCRISTINE [Suspect]
     Active Substance: VINCRISTINE
     Dosage: 2 MILLIGRAM, FLAT DOSE ON DAY 1 AND 8 (?2 DAYS)
     Route: 042
  21. VINCRISTINE [Suspect]
     Active Substance: VINCRISTINE
     Dosage: 2 MILLIGRAM, FLAT DOSE ON DAY 1 AND 8 (?2 DAYS)
     Route: 042
  22. VINCRISTINE [Suspect]
     Active Substance: VINCRISTINE
     Dosage: 2 MILLIGRAM, FLAT DOSE ON DAY 1 AND 8 (?2 DAYS)
     Route: 042
  23. VINCRISTINE [Suspect]
     Active Substance: VINCRISTINE
     Dosage: 2 MG APPROXIMATELY ON DAY 1, FOR 3 YEARS
  24. CYTARABINE [Suspect]
     Active Substance: CYTARABINE
     Indication: Acute lymphocytic leukaemia
     Dosage: 500 MG/M?, Q12H ON DAYS 2 AND 3
     Route: 042
  25. CYTARABINE [Suspect]
     Active Substance: CYTARABINE
     Dosage: 500 MG/M?, Q12H ON DAYS 2 AND 3
     Route: 042
  26. CYTARABINE [Suspect]
     Active Substance: CYTARABINE
     Dosage: 500 MG/M?, Q12H ON DAYS 2 AND 3
     Route: 042
  27. CYTARABINE [Suspect]
     Active Substance: CYTARABINE
     Dosage: 500 MG/M?, Q12H ON DAYS 2 AND 3
     Route: 042
  28. PREDNISONE [Suspect]
     Active Substance: PREDNISONE
     Indication: Acute lymphocytic leukaemia
     Dosage: 50 MILLIGRAM, QD, FOR 5 DAYS EVERY MONTH FOR 1 YEAR
  29. MERCAPTOPURINE [Suspect]
     Active Substance: MERCAPTOPURINE
     Indication: Acute lymphocytic leukaemia
     Dosage: 50 MILLIGRAM, BID, FOR 3 YEARS
  30. METHOTREXATE [Suspect]
     Active Substance: METHOTREXATE
     Indication: Acute lymphocytic leukaemia
     Dosage: 10 MG/M? ONCE WEEKLY FOR 3 YEARS
     Route: 048
  31. PEGFILGRASTIM [Concomitant]
     Active Substance: PEGFILGRASTIM
     Indication: Product used for unknown indication
     Dosage: 6 MILLIGRAM, AFTER EACH MINI-HYPER-CVD CHEMOTHERAPY COURSE
     Route: 058
  32. URSODIOL [Concomitant]
     Active Substance: URSODIOL
     Indication: Product used for unknown indication
     Dosage: 300 MILLIGRAM, TID
     Route: 048

REACTIONS (2)
  - Haemophagocytic lymphohistiocytosis [Fatal]
  - Multiple organ dysfunction syndrome [Fatal]
